FAERS Safety Report 5179699-0 (Version None)
Quarter: 2006Q4

REPORT INFORMATION
  Report Type: 
  Country: None (occurrence: None)
  Receive Date: 20061212
  Receipt Date: 20061205
  Transmission Date: 20070319
  Serious: Yes (Hospitalization)
  Sender: FDA-Public Use
  Company Number: 200612AGG00530

PATIENT
  Age: 51 Year
  Sex: Male

DRUGS (6)
  1. TIROFIBAN HCL [Suspect]
     Indication: ACUTE MYOCARDIAL INFARCTION
     Dosage: 7.5 ML, IV (ICH 042)
     Route: 042
     Dates: start: 20060912, end: 20060912
  2. THERAPIES UNSPECIFIED [Concomitant]
  3. FRISIUM (CLOBAZAM) [Concomitant]
  4. CLOPIDOGREL BISULFATE [Concomitant]
  5. LAMICTAL [Concomitant]
  6. ASPIRIN [Concomitant]

REACTIONS (3)
  - GASTRIC ULCER HAEMORRHAGE [None]
  - HAEMATEMESIS [None]
  - ULCER HAEMORRHAGE [None]
